FAERS Safety Report 9495817 (Version 2)
Quarter: 2013Q4

REPORT INFORMATION
  Report Type: Spontaneous
  Country: US (occurrence: US)
  Receive Date: 20130903
  Receipt Date: 20131014
  Transmission Date: 20140711
  Serious: No
  Sender: FDA-Public Use
  Company Number: US-009507513-1309USA000481

PATIENT
  Age: 60 Year
  Sex: Male
  Weight: 80.73 kg

DRUGS (12)
  1. PEGINTRON [Suspect]
     Indication: HEPATITIS C
     Dosage: 120 MICROGRAM 0.5 ML, QW, REDIPEN
     Route: 058
     Dates: start: 20130726
  2. VICTRELIS [Suspect]
     Indication: HEPATITIS C
     Dosage: 4 CAPSULES, TID
     Route: 048
     Dates: start: 20130823
  3. RIBAPAK [Suspect]
     Indication: HEPATITIS C
     Dosage: 500 MG, BID
     Route: 048
     Dates: start: 20130726
  4. NATURES MADE CHOLEST OFF [Concomitant]
     Dosage: 1 DF, BID
  5. OMEGA-3 MARINE TRIGLYCERIDES [Concomitant]
     Dosage: 1 DF, BID
  6. ASPIRIN [Concomitant]
     Dosage: 1 DF, QD
  7. MAGNESIUM OXIDE [Concomitant]
     Dosage: 1 DF, QD
  8. CARVEDILOL [Concomitant]
     Dosage: 1 DF, BID
  9. CHOLECALCIFEROL [Concomitant]
     Dosage: 1 DF, QD
  10. CENTRUM SILVER [Concomitant]
     Dosage: 1 DF, QD
  11. SPIRONOLACTONE [Concomitant]
     Dosage: 1 DF, BID
  12. COZAAR [Concomitant]

REACTIONS (9)
  - Red blood cell count decreased [Recovered/Resolved]
  - Haemoglobin decreased [Recovering/Resolving]
  - Malaise [Unknown]
  - Headache [Recovered/Resolved]
  - Chills [Recovered/Resolved]
  - Pyrexia [Recovered/Resolved]
  - Arthralgia [Recovered/Resolved]
  - Product quality issue [Unknown]
  - Drug dose omission [Unknown]
